FAERS Safety Report 4533246-2 (Version None)
Quarter: 2004Q4

REPORT INFORMATION
  Report Type: 
  Country: None (occurrence: None)
  Receive Date: 20041221
  Receipt Date: 20040614
  Transmission Date: 20050328
  Serious: Yes (Disabling)
  Sender: FDA-Public Use
  Company Number: DE-ABBOTT-04P-062-0264277-00

PATIENT
  Sex: Female
  Weight: 62 kg

DRUGS (13)
  1. HUMIRA [Suspect]
     Indication: RHEUMATOID ARTHRITIS
     Route: 058
     Dates: start: 20040112
  2. LEFLUNOMIDE [Suspect]
     Indication: RHEUMATOID ARTHRITIS
     Route: 048
     Dates: end: 20040801
  3. LEFLUNOMIDE [Suspect]
     Dates: start: 20000301
  4. LEFLUNOMIDE [Suspect]
     Dates: start: 20040801
  5. CELECOXIB [Concomitant]
     Indication: RHEUMATOID ARTHRITIS
     Route: 048
     Dates: start: 20030101, end: 20040901
  6. CELECOXIB [Concomitant]
     Route: 048
     Dates: start: 20040901
  7. PARACETAMOL [Concomitant]
     Indication: ARTHRALGIA
     Route: 048
  8. METHYLPREDNISOLONE [Concomitant]
     Indication: DRUG USE FOR UNKNOWN INDICATION
     Dates: start: 19920101
  9. ALENDRONATE SODIUM [Concomitant]
     Indication: OSTEOPOROSIS
     Dates: start: 20001201
  10. ASPIRIN [Concomitant]
     Indication: DRUG USE FOR UNKNOWN INDICATION
     Dates: start: 20040501
  11. OMEPRAZOLE [Concomitant]
     Indication: DRUG USE FOR UNKNOWN INDICATION
     Dates: start: 19950101
  12. THEOPHYLLINE [Concomitant]
     Indication: ASTHMA
     Dates: start: 19990101
  13. ARTHROTEC [Concomitant]
     Indication: RHEUMATOID ARTHRITIS
     Dates: start: 20040901

REACTIONS (5)
  - HERPES SIMPLEX [None]
  - HYPERTONIC BLADDER [None]
  - INJECTION SITE REACTION [None]
  - URINARY INCONTINENCE [None]
  - URINARY TRACT INFECTION [None]
